FAERS Safety Report 13737606 (Version 1)
Quarter: 2017Q3

REPORT INFORMATION
  Report Type: Spontaneous
  Country: US (occurrence: US)
  Receive Date: 20170710
  Receipt Date: 20170710
  Transmission Date: 20171127
  Serious: Yes (Hospitalization)
  Sender: FDA-Public Use
  Company Number: US-SAOL THERAPEUTICS-2016SAO01194

PATIENT
  Age: 50 Year
  Sex: Male

DRUGS (8)
  1. LIORESAL [Suspect]
     Active Substance: BACLOFEN
     Indication: MUSCLE SPASTICITY
     Dosage: 300 ?G, \DAY
     Dates: start: 20120925
  2. LIORESAL [Suspect]
     Active Substance: BACLOFEN
     Dosage: 100 ?G, \DAY
  3. ASPIRIN. [Suspect]
     Active Substance: ASPIRIN
  4. LIORESAL [Suspect]
     Active Substance: BACLOFEN
     Dosage: 325 ?G, \DAY
  5. BENADRYL [Suspect]
     Active Substance: DIPHENHYDRAMINE HYDROCHLORIDE
  6. PEPCID [Suspect]
     Active Substance: FAMOTIDINE
  7. LIPITOR [Suspect]
     Active Substance: ATORVASTATIN CALCIUM
  8. LIORESAL [Suspect]
     Active Substance: BACLOFEN
     Dosage: 350 ?G, \DAY
     Route: 037

REACTIONS (5)
  - Vomiting [Recovered/Resolved]
  - Nausea [Recovered/Resolved]
  - Mental status changes [Recovered/Resolved]
  - Depressed level of consciousness [Recovered/Resolved]
  - Muscle tightness [Recovered/Resolved]

NARRATIVE: CASE EVENT DATE: 20131014
